FAERS Safety Report 6910461-1 (Version None)
Quarter: 2010Q3

REPORT INFORMATION
  Report Type: 
  Country: None (occurrence: None)
  Receive Date: 20100806
  Receipt Date: 20100728
  Transmission Date: 20110219
  Serious: Yes (Other)
  Sender: FDA-Public Use
  Company Number: CO-PFIZER INC-2010092611

PATIENT
  Age: 78 Year
  Sex: Male

DRUGS (4)
  1. DETRUSITOL SR [Suspect]
     Indication: INCONTINENCE
     Dosage: 4 MG, DAILY
     Dates: start: 20090101, end: 20100501
  2. LITHIUM CARBONATE [Concomitant]
     Indication: BIPOLAR I DISORDER
  3. NIFEDIPINE [Concomitant]
     Indication: BLOOD PRESSURE
  4. ENALAPRIL [Concomitant]

REACTIONS (3)
  - DRUG INEFFECTIVE [None]
  - HEART RATE DECREASED [None]
  - LOSS OF CONSCIOUSNESS [None]
